FAERS Safety Report 6291502-4 (Version None)
Quarter: 2009Q3

REPORT INFORMATION
  Report Type: 
  Country: None (occurrence: None)
  Receive Date: 20090729
  Receipt Date: 20090729
  Transmission Date: 20100115
  Serious: Yes (Death)
  Sender: FDA-Public Use
  Company Number: None

PATIENT
  Age: 16 Year
  Sex: Female
  Weight: 25.855 kg

DRUGS (1)
  1. METOCLOPRAMIDE [Suspect]
     Indication: NAUSEA
     Dosage: 1 TAB EVERY 12 HOURS PO
     Route: 048
     Dates: start: 20090722, end: 20090722

REACTIONS (5)
  - CHROMATURIA [None]
  - DYSPNOEA [None]
  - HAEMATOCHEZIA [None]
  - POSTURE ABNORMAL [None]
  - VOMITING [None]
